FAERS Safety Report 16968230 (Version 1)
Quarter: 2019Q4

REPORT INFORMATION
  Report Type: Spontaneous
  Country: FI (occurrence: FI)
  Receive Date: 20191028
  Receipt Date: 20191028
  Transmission Date: 20200122
  Serious: Yes (Hospitalization)
  Sender: FDA-Public Use
  Company Number: FI-BEH-2019108362

PATIENT
  Age: 6 Year
  Sex: Female

DRUGS (3)
  1. BERINERT [Suspect]
     Active Substance: HUMAN C1-ESTERASE INHIBITOR
     Indication: HEREDITARY ANGIOEDEMA
     Dosage: 500 INTERNATIONAL UNIT, SINGLE
     Route: 042
     Dates: start: 20190917, end: 20190917
  2. GEEPENIL [Concomitant]
     Indication: INFECTION
     Route: 042
  3. BERINERT [Suspect]
     Active Substance: HUMAN C1-ESTERASE INHIBITOR
     Indication: HEREDITARY ANGIOEDEMA
     Dosage: 500 INTERNATIONAL UNIT, SINGLE
     Route: 042
     Dates: start: 20190917, end: 20190917

REACTIONS (4)
  - Rash macular [Recovered/Resolved]
  - Salivary hypersecretion [Recovered/Resolved]
  - Face oedema [Recovered/Resolved]
  - Tongue oedema [Recovered/Resolved]

NARRATIVE: CASE EVENT DATE: 20190917
